FAERS Safety Report 17703535 (Version 1)
Quarter: 2020Q2

REPORT INFORMATION
  Report Type: Spontaneous
  Country: US (occurrence: US)
  Receive Date: 20200424
  Receipt Date: 20200424
  Transmission Date: 20200714
  Serious: Yes (Death)
  Sender: FDA-Public Use
  Company Number: NVSC2020US109763

PATIENT
  Age: 17 Week
  Sex: Female

DRUGS (3)
  1. NADOLOL. [Suspect]
     Active Substance: NADOLOL
     Dosage: 5.5 MG/KG, BID
     Route: 065
  2. NADOLOL. [Suspect]
     Active Substance: NADOLOL
     Indication: INFANTILE HAEMANGIOMA
     Dosage: 0.25 MG/KG PER DAY DIVIDED TWICE DAILY (BID)
     Route: 065
  3. NADOLOL. [Suspect]
     Active Substance: NADOLOL
     Dosage: 2.0 MG/KG, BID
     Route: 065

REACTIONS (6)
  - Cyanosis [Unknown]
  - Product use in unapproved indication [Unknown]
  - Hypophagia [Unknown]
  - Toxicity to various agents [Fatal]
  - Anal incontinence [Unknown]
  - Somnolence [Unknown]
